FAERS Safety Report 5424145-2 (Version None)
Quarter: 2007Q3

REPORT INFORMATION
  Report Type: 
  Country: None (occurrence: None)
  Receive Date: 20070823
  Receipt Date: 20070815
  Transmission Date: 20080115
  Serious: Yes (Death, Hospitalization, Other)
  Sender: FDA-Public Use
  Company Number: US-PFIZER INC-2007050832

PATIENT
  Sex: Male
  Weight: 65.8 kg

DRUGS (1)
  1. CELEBREX [Suspect]
     Indication: PAIN IN EXTREMITY
     Route: 048
     Dates: start: 20010101, end: 20040101

REACTIONS (4)
  - CORONARY ARTERY OCCLUSION [None]
  - DEPRESSION [None]
  - MYOCARDIAL INFARCTION [None]
  - NERVOUSNESS [None]
